FAERS Safety Report 24533971 (Version 4)
Quarter: 2024Q4

REPORT INFORMATION
  Report Type: Spontaneous
  Country: JP (occurrence: JP)
  Receive Date: 20241022
  Receipt Date: 20241125
  Transmission Date: 20250114
  Serious: Yes (Hospitalization)
  Sender: ELI LILLY AND COMPANY
  Company Number: JP-NShinyaku-EVA202406999ZZLILLY

PATIENT
  Age: 45 Year
  Sex: Female

DRUGS (23)
  1. TADALAFIL [Suspect]
     Active Substance: TADALAFIL
     Indication: Pulmonary arterial hypertension
     Dosage: 40 MG, DAILY
     Route: 048
     Dates: start: 201107
  2. AMBRISENTAN [Concomitant]
     Active Substance: AMBRISENTAN
     Indication: Pulmonary arterial hypertension
     Dosage: 5 MG, DAILY
     Route: 048
     Dates: start: 2013, end: 2023
  3. UPTRAVI [Concomitant]
     Active Substance: SELEXIPAG
     Indication: Pulmonary arterial hypertension
     Dosage: 0.4 MG, DAILY
     Route: 048
     Dates: start: 20230608, end: 20230614
  4. UPTRAVI [Concomitant]
     Active Substance: SELEXIPAG
     Dosage: 0.8 MG, DAILY
     Dates: start: 20230615, end: 20230621
  5. UPTRAVI [Concomitant]
     Active Substance: SELEXIPAG
     Dosage: 1.2 MG, DAILY
     Route: 048
     Dates: start: 20230622, end: 20230628
  6. UPTRAVI [Concomitant]
     Active Substance: SELEXIPAG
     Dosage: 1.6 MG, DAILY
     Route: 048
     Dates: start: 20230629, end: 20230705
  7. UPTRAVI [Concomitant]
     Active Substance: SELEXIPAG
     Dosage: 2.0 MG, DAILY
     Route: 048
     Dates: start: 20230706, end: 20230712
  8. UPTRAVI [Concomitant]
     Active Substance: SELEXIPAG
     Dosage: 2.4 MG, DAILY
     Route: 048
     Dates: start: 20230713, end: 20230719
  9. UPTRAVI [Concomitant]
     Active Substance: SELEXIPAG
     Dosage: 2.8 MG, DAILY
     Route: 048
     Dates: start: 20230720, end: 20230726
  10. UPTRAVI [Concomitant]
     Active Substance: SELEXIPAG
     Dosage: 3.2 MG, DAILY
     Route: 048
     Dates: start: 20230727, end: 20240801
  11. BOSENTAN [Concomitant]
     Active Substance: BOSENTAN
     Indication: Pulmonary arterial hypertension
     Route: 048
     Dates: start: 201107
  12. BOSENTAN [Concomitant]
     Active Substance: BOSENTAN
     Dosage: 125 MG, DAILY
     Dates: end: 2013
  13. OPSUMIT [Concomitant]
     Active Substance: MACITENTAN
     Indication: Pulmonary arterial hypertension
     Dosage: 10 MG, DAILY
     Route: 048
     Dates: start: 2023
  14. EPOPROSTENOL [Concomitant]
     Active Substance: EPOPROSTENOL
     Indication: Pulmonary arterial hypertension
     Dosage: UNKNOWN
     Route: 041
     Dates: start: 20110913, end: 20110913
  15. EPOPROSTENOL [Concomitant]
     Active Substance: EPOPROSTENOL
     Dosage: 80 NG/KG/MIN, GRADUALLY INCREASED
  16. EPOPROSTENOL [Concomitant]
     Active Substance: EPOPROSTENOL
     Dosage: 74 NG/KG/MIN
  17. EPOPROSTENOL [Concomitant]
     Active Substance: EPOPROSTENOL
     Dosage: 70 NG/KG/MIN
  18. EPOPROSTENOL [Concomitant]
     Active Substance: EPOPROSTENOL
     Dosage: 65 NG/KG/MIN
  19. EPOPROSTENOL [Concomitant]
     Active Substance: EPOPROSTENOL
     Dosage: 56 NG/KG/MIN
  20. EPOPROSTENOL [Concomitant]
     Active Substance: EPOPROSTENOL
     Dosage: 21 NG/KG/MIN
     Dates: end: 2023
  21. EPOPROSTENOL [Concomitant]
     Active Substance: EPOPROSTENOL
     Dosage: 36 NG/KG/MIN, GRADUALLY INCREASED
     Dates: start: 20240911
  22. TRACLEER [Concomitant]
     Active Substance: BOSENTAN
     Dosage: 62.5 MG, BID
     Route: 048
  23. TRACLEER [Concomitant]
     Active Substance: BOSENTAN
     Dosage: 125 MG, DAILY

REACTIONS (8)
  - Pulmonary hypertension [Recovered/Resolved]
  - Headache [Recovered/Resolved]
  - Diarrhoea [Recovered/Resolved]
  - Flushing [Recovered/Resolved]
  - Platelet count decreased [Unknown]
  - Platelet count decreased [Unknown]
  - Liver disorder [Unknown]
  - Liver disorder [Recovered/Resolved]

NARRATIVE: CASE EVENT DATE: 20110829
